FAERS Safety Report 24214276 (Version 2)
Quarter: 2024Q3

REPORT INFORMATION
  Report Type: Report from Study
  Country: CA (occurrence: CA)
  Receive Date: 20240815
  Receipt Date: 20240819
  Transmission Date: 20241016
  Serious: Yes (Other)
  Sender: JOHNSON AND JOHNSON
  Company Number: CA-JNJFOC-20240831714

PATIENT
  Age: 16 Year
  Sex: Male
  Weight: 64 kg

DRUGS (2)
  1. REMICADE [Suspect]
     Active Substance: INFLIXIMAB
     Indication: Crohn^s disease
     Dosage: REINDUCTION WEEK 0-2-6- 600 MG IV THEN 600 MG Q 6 WEEKS AS REQUIRED BY MD. ?LAST DOSE RECEIVED ON 09
     Route: 041
     Dates: start: 20190531
  2. REMICADE [Suspect]
     Active Substance: INFLIXIMAB
     Route: 041
     Dates: start: 20190628

REACTIONS (1)
  - Crohn^s disease [Unknown]
